FAERS Safety Report 4476699-0 (Version None)
Quarter: 2004Q4

REPORT INFORMATION
  Report Type: 
  Country: None (occurrence: None)
  Receive Date: 20041013
  Receipt Date: 20041001
  Transmission Date: 20050328
  Serious: Yes (Other)
  Sender: FDA-Public Use
  Company Number: 163-20785-04100113

PATIENT
  Sex: 0

DRUGS (3)
  1. THALOMID [Suspect]
     Indication: MULTIPLE MYELOMA
     Dosage: INDUCTION PHASE: 200-400 MG ORALLY
     Route: 048
     Dates: start: 20030325, end: 20040101
  2. GENASENSE [Suspect]
     Indication: MULTIPLE MYELOMA
     Dosage: INDUCTION PHASE: 5OR 7 MG/KG/DAY
     Dates: start: 20030325, end: 20040101
  3. DEXAMETHASONE [Suspect]
     Indication: MULTIPLE MYELOMA
     Dosage: INDUCTION PHASE: 40 MG DAYS 4-7, 25-28, AND 46-49 MAINTENANCE PHASE: 20 MG ON DAYS 4-7 EVERY 5 WEEKS
     Route: 048
     Dates: start: 20030325, end: 20040101

REACTIONS (23)
  - ALANINE AMINOTRANSFERASE [None]
  - BACK PAIN [None]
  - BLOOD CREATININE ABNORMAL [None]
  - CONSTIPATION [None]
  - COUGH [None]
  - DRY MOUTH [None]
  - DYSGEUSIA [None]
  - FLUID RETENTION [None]
  - FLUSHING [None]
  - GRANULOCYTES ABNORMAL [None]
  - HAEMOGLOBIN ABNORMAL [None]
  - HEADACHE [None]
  - HOT FLUSH [None]
  - HYPERCALCAEMIA [None]
  - HYPERGLYCAEMIA [None]
  - HYPERMAGNESAEMIA [None]
  - NASAL CONGESTION [None]
  - NEUROPATHY [None]
  - NEUTROPHIL COUNT ABNORMAL [None]
  - OEDEMA [None]
  - PAIN [None]
  - PYREXIA [None]
  - STOMACH DISCOMFORT [None]
